FAERS Safety Report 20196003 (Version 1)
Quarter: 2021Q4

REPORT INFORMATION
  Report Type: Spontaneous
  Country: US (occurrence: None)
  Receive Date: 20211216
  Receipt Date: 20211216
  Transmission Date: 20220304
  Serious: Yes (Other)
  Sender: FDA-Public Use
  Company Number: None

PATIENT
  Age: 26 Year
  Sex: Female
  Weight: 120 kg

DRUGS (4)
  1. MISOPROSTOL [Suspect]
     Active Substance: MISOPROSTOL
     Indication: Uterine atony
     Dosage: OTHER FREQUENCY : ONCE;?
     Route: 048
     Dates: start: 20211127, end: 20211127
  2. SERTRALINE [Concomitant]
     Active Substance: SERTRALINE HYDROCHLORIDE
     Dates: start: 20211127, end: 20211128
  3. ONDANSETRON [Concomitant]
     Active Substance: ONDANSETRON
     Dates: start: 20211127, end: 20211127
  4. IBUPROFEN [Concomitant]
     Active Substance: IBUPROFEN
     Dates: start: 20211127, end: 20211128

REACTIONS (7)
  - Tremor [None]
  - Chills [None]
  - Agitation [None]
  - Feeling cold [None]
  - Pyrexia [None]
  - Adverse drug reaction [None]
  - Anxiety [None]

NARRATIVE: CASE EVENT DATE: 20211127
